FAERS Safety Report 10905751 (Version 1)
Quarter: 2015Q1

REPORT INFORMATION
  Report Type: Spontaneous
  Country: US (occurrence: None)
  Receive Date: 20150309
  Receipt Date: 20150309
  Transmission Date: 20150721
  Serious: Yes (Disabling)
  Sender: FDA-Public Use
  Company Number: None

PATIENT
  Age: 61 Year
  Sex: Male
  Weight: 81.65 kg

DRUGS (4)
  1. CHANTIX [Suspect]
     Active Substance: VARENICLINE TARTRATE
     Indication: SMOKING CESSATION THERAPY
     Dosage: 2 PILLS TWICE DAILY TAKEN BY MOUTH
     Route: 048
     Dates: start: 20150220, end: 20150303
  2. TYLENOL WITH CODEINE [Concomitant]
     Active Substance: ACETAMINOPHEN\CODEINE PHOSPHATE
  3. NAPROXEN. [Concomitant]
     Active Substance: NAPROXEN
  4. ADVIL [Concomitant]
     Active Substance: IBUPROFEN

REACTIONS (3)
  - Arthralgia [None]
  - Drug ineffective [None]
  - Pain in extremity [None]

NARRATIVE: CASE EVENT DATE: 20150305
